FAERS Safety Report 20303657 (Version 1)
Quarter: 2022Q1

REPORT INFORMATION
  Report Type: Spontaneous
  Country: US (occurrence: None)
  Receive Date: 20220105
  Receipt Date: 20220105
  Transmission Date: 20220423
  Serious: Yes (Death)
  Sender: FDA-Public Use
  Company Number: None

PATIENT
  Age: 55 Year
  Sex: Male
  Weight: 264 kg

DRUGS (1)
  1. TOCILIZUMAB [Suspect]
     Active Substance: TOCILIZUMAB
     Indication: COVID-19
     Dosage: FREQUENCY : ONCE;?
     Route: 042
     Dates: start: 20211216, end: 20211216

REACTIONS (6)
  - Bacterial infection [None]
  - Fusobacterium test positive [None]
  - Respiratory depression [None]
  - Cough [None]
  - Wheezing [None]
  - Hypotension [None]

NARRATIVE: CASE EVENT DATE: 20220102
